FAERS Safety Report 4870867-1 (Version None)
Quarter: 2006Q1

REPORT INFORMATION
  Report Type: 
  Country: None (occurrence: None)
  Receive Date: 20060103
  Receipt Date: 20051208
  Transmission Date: 20060701
  Serious: Yes (Death, Hospitalization)
  Sender: FDA-Public Use
  Company Number: US-MERCK-0512USA02116

PATIENT
  Age: 67 Year
  Sex: Male
  Weight: 82 kg

DRUGS (3)
  1. VIOXX [Suspect]
     Indication: ARTHRALGIA
     Route: 048
     Dates: start: 20000101, end: 20020101
  2. LIPITOR [Concomitant]
     Route: 065
  3. ALLOPURINOL [Concomitant]
     Route: 065

REACTIONS (2)
  - ARTHROPATHY [None]
  - PULMONARY EMBOLISM [None]
